FAERS Safety Report 7083336-8 (Version None)
Quarter: 2010Q4

REPORT INFORMATION
  Report Type: 
  Country: None (occurrence: None)
  Receive Date: 20101104
  Receipt Date: 20101101
  Transmission Date: 20110411
  Serious: Yes (Death, Other)
  Sender: FDA-Public Use
  Company Number: PHHY2008US37097

PATIENT
  Sex: Female

DRUGS (5)
  1. EXJADE [Suspect]
     Dosage: 500 MG
     Route: 048
  2. VIDAZA [Concomitant]
  3. REVLIMID [Concomitant]
  4. CIPRO [Concomitant]
  5. ROXICODONE [Concomitant]

REACTIONS (2)
  - INFECTION [None]
  - RENAL FAILURE [None]
